FAERS Safety Report 13097271 (Version 1)
Quarter: 2017Q1

REPORT INFORMATION
  Report Type: Spontaneous
  Country: US (occurrence: US)
  Receive Date: 20170107
  Receipt Date: 20170107
  Transmission Date: 20170428
  Serious: Yes (Life-Threatening, Hospitalization)
  Sender: FDA-Public Use
  Company Number: None

PATIENT
  Age: 62 Year
  Sex: Male
  Weight: 96.75 kg

DRUGS (8)
  1. CALCIUM [Concomitant]
     Active Substance: CALCIUM
  2. LABETALOL [Concomitant]
     Active Substance: LABETALOL\LABETALOL HYDROCHLORIDE
  3. PROCARDIA XL [Concomitant]
     Active Substance: NIFEDIPINE
  4. SYNTHROID [Concomitant]
     Active Substance: LEVOTHYROXINE SODIUM
  5. VITAMIN B12 [Concomitant]
     Active Substance: CYANOCOBALAMIN
  6. HYDRALAZINE [Suspect]
     Active Substance: HYDRALAZINE HYDROCHLORIDE
     Indication: AORTIC DISSECTION
     Dosage: QUANTITY:2 TABLET(S); TWICE A DAY; ORAL?
     Route: 048
     Dates: start: 20151207, end: 20161202
  7. HYDRALAZINE [Suspect]
     Active Substance: HYDRALAZINE HYDROCHLORIDE
     Indication: HYPERTENSION
     Dosage: QUANTITY:2 TABLET(S); TWICE A DAY; ORAL?
     Route: 048
     Dates: start: 20151207, end: 20161202
  8. PREDNISONE. [Concomitant]
     Active Substance: PREDNISONE

REACTIONS (9)
  - Dyspnoea [None]
  - Vasculitis [None]
  - Fatigue [None]
  - Blood creatinine increased [None]
  - Haemoglobin decreased [None]
  - Asthenia [None]
  - Pulmonary alveolar haemorrhage [None]
  - Lupus-like syndrome [None]
  - Intestinal obstruction [None]

NARRATIVE: CASE EVENT DATE: 20161202
